FAERS Safety Report 4998570-8 (Version None)
Quarter: 2006Q2

REPORT INFORMATION
  Report Type: 
  Country: None (occurrence: None)
  Receive Date: 20060508
  Receipt Date: 20060426
  Transmission Date: 20061013
  Serious: Yes (Hospitalization)
  Sender: FDA-Public Use
  Company Number: HQWYE866519APR06

PATIENT
  Age: 20 Year
  Sex: Male

DRUGS (4)
  1. RAPAMUNE [Suspect]
     Indication: PROPHYLAXIS AGAINST TRANSPLANT REJECTION
     Dosage: 2 MG 1X PER 1 DAY ORAL
     Route: 048
     Dates: start: 20051109, end: 20060417
  2. RAPAMUNE [Suspect]
     Indication: PROPHYLAXIS AGAINST TRANSPLANT REJECTION
     Dosage: 2 MG 1X PER 1 DAY ORAL
     Route: 048
     Dates: start: 20060422
  3. MYCOPHENOLATE MOFETIL [Concomitant]
  4. PREDNISONE TAB [Concomitant]

REACTIONS (5)
  - BLOOD CREATININE INCREASED [None]
  - CYTOMEGALOVIRUS HEPATITIS [None]
  - HEPATITIS VIRAL [None]
  - HERPES SIMPLEX [None]
  - IMMUNOSUPPRESSANT DRUG LEVEL INCREASED [None]
